FAERS Safety Report 19619909 (Version 10)
Quarter: 2022Q1

REPORT INFORMATION
  Report Type: Spontaneous
  Country: CA (occurrence: CA)
  Receive Date: 20210728
  Receipt Date: 20220331
  Transmission Date: 20220424
  Serious: Yes (Hospitalization, Other)
  Sender: FDA-Public Use
  Company Number: CA-CELLTRION INC.-2021CA009955

PATIENT

DRUGS (10)
  1. INFLECTRA [Suspect]
     Active Substance: INFLIXIMAB-DYYB
     Indication: Crohn^s disease
     Dosage: 800 MG, AT 0, 2, 6 WEEKS, THEN EVERY 6 WEEKS
     Route: 042
     Dates: start: 20210713
  2. INFLECTRA [Suspect]
     Active Substance: INFLIXIMAB-DYYB
     Dosage: 800 MG, AT 0, 2, 6 WEEKS, THEN EVERY 6 WEEKS
     Route: 042
     Dates: start: 20210713
  3. INFLECTRA [Suspect]
     Active Substance: INFLIXIMAB-DYYB
     Dosage: 800 MG, AT 0, 2, 6 WEEKS, THEN EVERY 6 WEEKS
     Route: 042
     Dates: start: 20210730
  4. INFLECTRA [Suspect]
     Active Substance: INFLIXIMAB-DYYB
     Dosage: 800 MG, AT 0, 2, 6 WEEKS, THEN EVERY 6 WEEKS
     Route: 042
     Dates: start: 20210823
  5. INFLECTRA [Suspect]
     Active Substance: INFLIXIMAB-DYYB
     Dosage: 800 MG, AT 0, 2, 6 WEEKS, THEN EVERY 6 WEEKS
     Route: 042
     Dates: start: 20211005
  6. INFLECTRA [Suspect]
     Active Substance: INFLIXIMAB-DYYB
     Dosage: 800 MG, AT 0, 2, 6 WEEKS, THEN EVERY 6 WEEKS
     Route: 042
     Dates: start: 20211122
  7. INFLECTRA [Suspect]
     Active Substance: INFLIXIMAB-DYYB
     Dosage: 800 MG, AT 0, 2, 6 WEEKS, THEN EVERY 6 WEEKS
     Route: 042
     Dates: start: 20211227
  8. INFLECTRA [Suspect]
     Active Substance: INFLIXIMAB-DYYB
     Dosage: 800 MG, AT 0, 2, 6 WEEKS, THEN EVERY 6 WEEKS
     Route: 042
     Dates: start: 20220127
  9. INFLECTRA [Suspect]
     Active Substance: INFLIXIMAB-DYYB
     Dosage: 800 MG, AT 0, 2, 6 WEEKS, THEN EVERY 6 WEEKS
     Route: 042
     Dates: start: 20220208
  10. PREDNISONE [Concomitant]
     Active Substance: PREDNISONE
     Dosage: 50 MG, 1X/DAY
     Route: 065

REACTIONS (30)
  - Abdominal pain [Unknown]
  - Hypertensive crisis [Not Recovered/Not Resolved]
  - Soft tissue necrosis [Unknown]
  - Pyoderma gangrenosum [Recovering/Resolving]
  - Disease recurrence [Recovering/Resolving]
  - Nephrolithiasis [Unknown]
  - Off label use [Unknown]
  - Swelling [Unknown]
  - Purulent discharge [Unknown]
  - Abscess [Unknown]
  - Heart rate irregular [Unknown]
  - Chest discomfort [Not Recovered/Not Resolved]
  - Dyspepsia [Unknown]
  - Feeling abnormal [Unknown]
  - Hyperhidrosis [Unknown]
  - Palpitations [Unknown]
  - Chest pain [Not Recovered/Not Resolved]
  - Asthenia [Unknown]
  - Hypoaesthesia [Not Recovered/Not Resolved]
  - Condition aggravated [Not Recovered/Not Resolved]
  - Fatigue [Not Recovered/Not Resolved]
  - Localised infection [Recovered/Resolved]
  - Arthralgia [Unknown]
  - Aphthous ulcer [Unknown]
  - Anal fissure [Unknown]
  - Dehydration [Unknown]
  - Dizziness [Not Recovered/Not Resolved]
  - Ulcer [Unknown]
  - C-reactive protein increased [Not Recovered/Not Resolved]
  - Diarrhoea [Unknown]

NARRATIVE: CASE EVENT DATE: 20210713
